FAERS Safety Report 17541099 (Version 1)
Quarter: 2020Q1

REPORT INFORMATION
  Report Type: Spontaneous
  Country: US (occurrence: US)
  Receive Date: 20200313
  Receipt Date: 20200313
  Transmission Date: 20200409
  Serious: No
  Sender: FDA-Public Use
  Company Number: US-PERRIGO-19US008582

PATIENT
  Age: 41 Year
  Sex: Male
  Weight: 104.31 kg

DRUGS (3)
  1. TESTOSTERONE CYPIONATE. [Suspect]
     Active Substance: TESTOSTERONE CYPIONATE
     Indication: BLOOD TESTOSTERONE DECREASED
     Dosage: 100 MG, TWICE WEEKLY
     Route: 030
     Dates: start: 201707, end: 201809
  2. ANASTROZOLE. [Concomitant]
     Active Substance: ANASTROZOLE
     Indication: OESTROGEN THERAPY
     Dosage: UNK
     Route: 065
     Dates: start: 20190701
  3. TESTOSTERONE CYPIONATE. [Suspect]
     Active Substance: TESTOSTERONE CYPIONATE
     Dosage: 100 MG, TWICE WEEKLY
     Route: 030
     Dates: start: 20190701

REACTIONS (2)
  - Arthritis [Not Recovered/Not Resolved]
  - Inappropriate schedule of product administration [Not Recovered/Not Resolved]

NARRATIVE: CASE EVENT DATE: 201707
